FAERS Safety Report 15936955 (Version 2)
Quarter: 2019Q1

REPORT INFORMATION
  Report Type: Spontaneous
  Country: US (occurrence: US)
  Receive Date: 20190208
  Receipt Date: 20190313
  Transmission Date: 20190417
  Serious: Yes (Other)
  Sender: FDA-Public Use
  Company Number: US-ASTRAZENECA-2018SF22343

PATIENT
  Sex: Female

DRUGS (16)
  1. CLOPIDOGREL [Concomitant]
     Active Substance: CLOPIDOGREL BISULFATE
  2. FUROSEMIDE. [Concomitant]
     Active Substance: FUROSEMIDE
  3. MILRINONE [Concomitant]
     Active Substance: MILRINONE
  4. ALBUTEROL. [Concomitant]
     Active Substance: ALBUTEROL
  5. PRILOSEC OTC [Suspect]
     Active Substance: OMEPRAZOLE MAGNESIUM
     Route: 048
     Dates: start: 20080101, end: 20150614
  6. ATORVASTATIN [Concomitant]
     Active Substance: ATORVASTATIN
  7. CHOLECALCIFEROL [Concomitant]
     Active Substance: CHOLECALCIFEROL
  8. METOPROLOL. [Concomitant]
     Active Substance: METOPROLOL
  9. AMIODARONE [Concomitant]
     Active Substance: AMIODARONE
  10. MORPHINE [Concomitant]
     Active Substance: MORPHINE
  11. MECLIZINE [Concomitant]
     Active Substance: MECLIZINE HYDROCHLORIDE
  12. PRILOSEC [Suspect]
     Active Substance: OMEPRAZOLE MAGNESIUM
     Route: 048
     Dates: start: 20080101, end: 20150614
  13. ATIVAN [Concomitant]
     Active Substance: LORAZEPAM
  14. WARFARIN [Concomitant]
     Active Substance: WARFARIN
  15. PLAVIX [Concomitant]
     Active Substance: CLOPIDOGREL BISULFATE
  16. TYLENOL [Concomitant]
     Active Substance: ACETAMINOPHEN

REACTIONS (5)
  - End stage renal disease [Unknown]
  - Chronic kidney disease [Unknown]
  - Renal injury [Unknown]
  - Acute kidney injury [Unknown]
  - Renal failure [Unknown]
